FAERS Safety Report 7889401-7 (Version None)
Quarter: 2011Q4

REPORT INFORMATION
  Report Type: 
  Country: None (occurrence: None)
  Receive Date: 20111103
  Receipt Date: 20111024
  Transmission Date: 20120403
  Serious: Yes (Hospitalization, Other)
  Sender: FDA-Public Use
  Company Number: BR-TEVA-306695ISR

PATIENT
  Sex: Male
  Weight: 41.9 kg

DRUGS (35)
  1. DIPYRONE TAB [Concomitant]
     Indication: PYREXIA
     Dosage: 156 GTT;
     Route: 048
     Dates: start: 20110802, end: 20110823
  2. OMEPRAZOLE [Interacting]
     Dosage: 40 MILLIGRAM; DAILY (FASTING)
     Route: 042
     Dates: start: 20110730, end: 20110802
  3. CISPLATIN [Concomitant]
     Route: 042
     Dates: start: 20110530, end: 20110531
  4. CISPLATIN [Concomitant]
     Route: 042
     Dates: start: 20110728, end: 20110729
  5. OMEPRAZOLE [Interacting]
     Dosage: 20 MILLIGRAM; DAILY (FASTING)
     Route: 048
     Dates: start: 20110802, end: 20110823
  6. ONDANSETRON [Concomitant]
     Dosage: 24 MILLIGRAM;
     Route: 042
     Dates: start: 20110730, end: 20110802
  7. ONDANSETRON [Concomitant]
     Dosage: 24 MILLIGRAM;
     Route: 042
     Dates: start: 20110824, end: 20110826
  8. ZINC OXIDE + COD-LIVER OIL 40G [Concomitant]
     Route: 048
     Dates: start: 20110722, end: 20110820
  9. DIPYRONE TAB [Concomitant]
     Dosage: 4000 MILLIGRAM;
     Route: 042
     Dates: start: 20110730, end: 20110802
  10. OMEPRAZOLE [Interacting]
     Dosage: 20 MILLIGRAM; DAILY (FASTING)
     Route: 048
     Dates: start: 20110827
  11. LEUCOVORIN CALCIUM [Suspect]
     Dosage: 120 MILLIGRAM;
     Route: 042
     Dates: start: 20110824, end: 20110826
  12. SODIUM BICARBONATE [Concomitant]
     Indication: CHEMOTHERAPY
     Route: 042
     Dates: start: 20110530, end: 20110823
  13. BROMOPRIDE [Concomitant]
     Dosage: 22.5 ;
     Route: 042
     Dates: start: 20110730, end: 20110802
  14. ONDANSETRON [Concomitant]
     Dosage: 24 MILLIGRAM;
     Route: 048
     Dates: start: 20110705, end: 20110729
  15. ONDANSETRON [Concomitant]
     Dosage: 24 MILLIGRAM;
     Route: 048
     Dates: start: 20110827
  16. CYCLOPHOSPHAMIDE [Suspect]
     Dosage: FREQUENCY: FROM MONDAY TO FRIDAY
     Route: 048
     Dates: start: 20110527
  17. METHOTREXATE [Suspect]
     Route: 048
     Dates: start: 20110530
  18. DEXAMETHASONE [Suspect]
     Indication: CHEMOTHERAPY
     Route: 042
     Dates: start: 20110530, end: 20110823
  19. DIPYRONE TAB [Concomitant]
     Indication: PAIN
     Dosage: 160 GTT;
     Route: 048
     Dates: start: 20110725, end: 20110729
  20. DIPYRONE TAB [Concomitant]
     Dosage: 120 GTT;
     Route: 048
     Dates: start: 20110827
  21. DIPYRONE TAB [Concomitant]
     Dosage: 4000 MILLIGRAM;
     Route: 042
     Dates: start: 20110824, end: 20110826
  22. BROMOPRIDE [Concomitant]
     Dosage: 22.5 ;
     Route: 042
     Dates: start: 20110824, end: 20110826
  23. AMITRIPTYLINE HCL [Concomitant]
     Dosage: 25 MILLIGRAM; AT NIGHT
     Route: 048
     Dates: start: 20110802
  24. OMEPRAZOLE [Interacting]
     Dosage: 20 MILLIGRAM; FASTING
     Route: 048
     Dates: start: 20110725, end: 20110729
  25. ONDANSETRON [Concomitant]
     Indication: PROPHYLAXIS OF NAUSEA AND VOMITING
     Route: 042
     Dates: start: 20110530, end: 20110823
  26. DOXORUBICIN HCL [Concomitant]
     Route: 042
     Dates: start: 20110530, end: 20110531
  27. MANNITOL [Concomitant]
     Indication: CHEMOTHERAPY
     Dosage: UNIT DOSE:40 ML + 80 ML
     Route: 042
     Dates: start: 20110530, end: 20110531
  28. MANNITOL [Concomitant]
     Dosage: UNIT DOSE:40 ML + 80 ML
     Route: 042
     Dates: start: 20110728, end: 20110729
  29. METRONIDAZOLE [Concomitant]
     Dosage: 1500 MILLIGRAM;
     Route: 048
     Dates: start: 20110725, end: 20110801
  30. DOXORUBICIN HCL [Concomitant]
     Route: 042
     Dates: start: 20110728, end: 20110729
  31. METHOTREXATE [Interacting]
     Indication: OSTEOSARCOMA METASTATIC
     Dosage: 552 MILLIGRAM;
     Route: 042
     Dates: start: 20110629, end: 20110823
  32. OMEPRAZOLE [Interacting]
     Dosage: 40 MILLIGRAM; DAILY (FASTING)
     Route: 042
     Dates: start: 20110824, end: 20110826
  33. LEUCOVORIN CALCIUM [Suspect]
     Indication: CHEMOTHERAPY
     Route: 042
     Dates: start: 20110530, end: 20110823
  34. LEUCOVORIN CALCIUM [Suspect]
     Dosage: 4 TABLET;
     Route: 048
     Dates: start: 20110822, end: 20110823
  35. ONDANSETRON [Concomitant]
     Dosage: 24 MILLIGRAM;
     Route: 048
     Dates: start: 20110802, end: 20110823

REACTIONS (15)
  - TACHYPNOEA [None]
  - AKATHISIA [None]
  - HYPOAESTHESIA ORAL [None]
  - DYSARTHRIA [None]
  - ASPARTATE AMINOTRANSFERASE INCREASED [None]
  - TACHYCARDIA [None]
  - ALANINE AMINOTRANSFERASE INCREASED [None]
  - HYPERHIDROSIS [None]
  - HYPOTENSION [None]
  - TOXICITY TO VARIOUS AGENTS [None]
  - VOMITING [None]
  - FEELING ABNORMAL [None]
  - FLUSHING [None]
  - MUSCLE SPASMS [None]
  - DRUG INTERACTION [None]
